FAERS Safety Report 7938190-6 (Version None)
Quarter: 2011Q4

REPORT INFORMATION
  Report Type: 
  Country: None (occurrence: None)
  Receive Date: 20111123
  Receipt Date: 20110927
  Transmission Date: 20120403
  Serious: No
  Sender: FDA-Public Use
  Company Number: US-BRISTOL-MYERS SQUIBB COMPANY-16100794

PATIENT
  Age: 72 Year
  Sex: Female

DRUGS (1)
  1. ONGLYZA [Suspect]
     Dosage: PARTIAL PLACED ABOUT 1 YEAR AGO
     Dates: start: 20101101

REACTIONS (1)
  - GINGIVAL PAIN [None]
